FAERS Safety Report 8088382-3 (Version None)
Quarter: 2012Q1

REPORT INFORMATION
  Report Type: 
  Country: None (occurrence: None)
  Receive Date: 20120128
  Receipt Date: 20110603
  Transmission Date: 20120608
  Serious: No
  Sender: FDA-Public Use
  Company Number: US-ABBOTT-11P-163-0729448-00

PATIENT
  Age: 73 Year
  Sex: Male

DRUGS (6)
  1. PROSCAR [Concomitant]
     Indication: PROSTATIC DISORDER
  2. HYZAAR [Concomitant]
     Indication: PRODUCT USED FOR UNKNOWN INDICATION
     Dosage: 100/25MG DAILY
  3. NORVASC [Concomitant]
     Indication: HYPERTENSION
  4. HUMIRA [Suspect]
     Indication: PSORIASIS
     Dates: start: 20101201, end: 20110401
  5. HYTRIN [Concomitant]
     Indication: PRODUCT USED FOR UNKNOWN INDICATION
  6. VYTORIN [Concomitant]
     Indication: BLOOD CHOLESTEROL

REACTIONS (2)
  - VISUAL IMPAIRMENT [None]
  - ONYCHOCLASIS [None]
